FAERS Safety Report 11840893 (Version 3)
Quarter: 2016Q1

REPORT INFORMATION
  Report Type: Spontaneous
  Country: US (occurrence: US)
  Receive Date: 20151216
  Receipt Date: 20160201
  Transmission Date: 20160525
  Serious: Yes (Hospitalization, Other)
  Sender: FDA-Public Use
  Company Number: US-GLAXOSMITHKLINE-US2015GSK177387

PATIENT
  Age: 85 Year
  Sex: Male

DRUGS (2)
  1. COREG [Suspect]
     Active Substance: CARVEDILOL
     Indication: CARDIAC DISORDER
     Dosage: 40 MG, UNK
  2. COREG CR [Suspect]
     Active Substance: CARVEDILOL PHOSPHATE
     Indication: PRODUCT USED FOR UNKNOWN INDICATION
     Dosage: 40 MG, UNK

REACTIONS (6)
  - Fall [Unknown]
  - Loss of consciousness [Unknown]
  - Spinal fracture [Unknown]
  - Spinal operation [Unknown]
  - Physiotherapy [Unknown]
  - Head injury [Unknown]

NARRATIVE: CASE EVENT DATE: 201508
